FAERS Safety Report 15602513 (Version 2)
Quarter: 2018Q4

REPORT INFORMATION
  Report Type: Spontaneous
  Country: JP (occurrence: JP)
  Receive Date: 20181109
  Receipt Date: 20181112
  Transmission Date: 20190205
  Serious: Yes (Other)
  Sender: FDA-Public Use
  Company Number: JP-SA-2018SA307175

PATIENT

DRUGS (1)
  1. THYMOGLOBULINE [Suspect]
     Active Substance: LAPINE T-LYMPHOCYTE IMMUNE GLOBULIN
     Indication: LIVER TRANSPLANT REJECTION
     Dosage: 1.5 MG/KG, QD
     Route: 041

REACTIONS (1)
  - Pancreatitis [Unknown]
